FAERS Safety Report 9522109 (Version 1)
Quarter: 2013Q1

REPORT INFORMATION
  Report Type: Spontaneous
  Country: US (occurrence: None)
  Receive Date: 20130305
  Receipt Date: 20130305
  Transmission Date: 20140127
  Serious: Yes (Hospitalization)
  Sender: FDA-Public Use
  Company Number: 163-21880-12032144

PATIENT
  Age: 77 Year
  Sex: Female
  Weight: 73.94 kg

DRUGS (18)
  1. REVLIMID [Suspect]
     Indication: PLASMA CELL MYELOMA
     Dosage: DAILY ON DAYS 1-21, FOLLOWED BY 7D OFF
     Route: 048
     Dates: start: 20120201
  2. PACKED RED BLOOD CELLS (BLOOD CELLS, PACKED HUMAN) (UNKNOWN) [Concomitant]
  3. AMITRIPTYLINE (AMITRIPTYLINE) (25 MILLIGRAM, TABLES) [Concomitant]
  4. ACYCLOVIR (ACICLOVIR) (TABLETS) [Concomitant]
  5. AMBIEN (ZOLPIDEM TARTRATE) (TABLETS) [Concomitant]
  6. ASA (ACETYLSALICYLIC ACID) (TABLETS) [Concomitant]
  7. CALCIUM (CALCIUM) (TABLETS) [Concomitant]
  8. IRON (IRON) (TABLETS) [Concomitant]
  9. LISINOPRIL (LISINOPRIL) (TABLETS) [Concomitant]
  10. METOPROLOL TARTRATE (METOPROLOL TARTRATE) (TABLETS) (METOPROLOL TARTRATE) [Concomitant]
  11. MULTIVITAMINS (MULTIVITAMINS) (TABLETS) [Concomitant]
  12. OXYCONTIN (OXYCODONE HYDROCHLORIDE) (TABLETS) [Concomitant]
  13. OXYCODONE (OXYCODONE) (CAPSULES) [Concomitant]
  14. PLAVIX (CLOPIDGREL SULFATE) (TABLETS) [Concomitant]
  15. PRILOSEC (OMEPRAZOLE) (CAPSULES) [Concomitant]
  16. PROMETHAZINE (PROMETHAZINE) (TABLETS) [Concomitant]
  17. SYNTHROID (LEVOTHYROXINE SODIUM) (TABLETS) [Concomitant]
  18. XANAX (ALPRAZOLAM) (TABLETS) [Concomitant]

REACTIONS (5)
  - Neuropathy peripheral [None]
  - Fatigue [None]
  - Asthenia [None]
  - Plasma cell myeloma [None]
  - Drug ineffective [None]
